FAERS Safety Report 13273762 (Version 22)
Quarter: 2025Q4

REPORT INFORMATION
  Report Type: Spontaneous
  Country: US (occurrence: US)
  Receive Date: 20170227
  Receipt Date: 20251209
  Transmission Date: 20260117
  Serious: Yes (Hospitalization, Other)
  Sender: PFIZER
  Company Number: US-PFIZER INC-2017077406

PATIENT
  Age: 61 Year
  Sex: Female
  Weight: 62.132 kg

DRUGS (26)
  1. XELJANZ XR [Suspect]
     Active Substance: TOFACITINIB CITRATE
     Indication: Rheumatoid arthritis
     Dosage: 11 MG, 1X/DAY
     Route: 048
     Dates: start: 201503
  2. XELJANZ XR [Suspect]
     Active Substance: TOFACITINIB CITRATE
     Indication: Arthritis
     Dosage: 11 MG, 1X/DAY
     Route: 048
     Dates: start: 20160721
  3. XELJANZ XR [Suspect]
     Active Substance: TOFACITINIB CITRATE
     Dosage: 11 MG, 1X/DAY
     Route: 048
     Dates: start: 2020
  4. XELJANZ XR [Suspect]
     Active Substance: TOFACITINIB CITRATE
     Dosage: 11 MG, 1X/DAY
     Route: 048
     Dates: start: 2020, end: 202502
  5. XELJANZ XR [Suspect]
     Active Substance: TOFACITINIB CITRATE
     Dosage: 11 MG, 1X/DAY
     Route: 048
     Dates: start: 20250205
  6. RAMIPRIL [Concomitant]
     Active Substance: RAMIPRIL
     Indication: Blood pressure abnormal
     Dosage: 10 MG, 1X/DAY
  7. METOPROLOL [Concomitant]
     Active Substance: METOPROLOL
     Indication: Blood pressure abnormal
     Dosage: 25 MG, 1X/DAY
  8. ASPIRIN [Concomitant]
     Active Substance: ASPIRIN
     Indication: Aneurysm
     Dosage: 325 MG, 1X/DAY
  9. ATORVASTATIN [Concomitant]
     Active Substance: ATORVASTATIN
     Indication: Blood cholesterol increased
     Dosage: 10 MG, DAILY
  10. CITALOPRAM [Concomitant]
     Active Substance: CITALOPRAM
     Indication: Nerve injury
     Dosage: 20 MG, DAILY
  11. OMEPRAZOLE [Concomitant]
     Active Substance: OMEPRAZOLE
     Indication: Gastrooesophageal reflux disease
     Dosage: 40 MG, 1X/DAY
  12. FAMOTIDINE [Concomitant]
     Active Substance: FAMOTIDINE
     Indication: Gastrooesophageal reflux disease
     Dosage: UNK
  13. HYDROCODONE [Concomitant]
     Active Substance: HYDROCODONE
     Indication: Rheumatoid arthritis
     Dosage: UNK(STRENGTH 10/325MG)
  14. HYDROCODONE [Concomitant]
     Active Substance: HYDROCODONE
     Indication: Sciatica
  15. METFORMIN [Concomitant]
     Active Substance: METFORMIN HYDROCHLORIDE
     Indication: Diabetes mellitus
     Dosage: 500 MG, 2X/DAY
  16. VITAMIN D3 [Concomitant]
     Active Substance: CHOLECALCIFEROL
     Dosage: 5000 IU
  17. PREDNISONE [Concomitant]
     Active Substance: PREDNISONE
     Indication: Rheumatoid arthritis
     Dosage: 2.5 MG, DAILY
  18. FLUOXETINE [Concomitant]
     Active Substance: FLUOXETINE HYDROCHLORIDE
     Dosage: UNK
  19. DOCUSATE [Concomitant]
     Active Substance: DOCUSATE
     Dosage: UNK
  20. CYCLOBENZAPRINE [Concomitant]
     Active Substance: CYCLOBENZAPRINE
     Dosage: UNK
  21. SENNA LEAF [Concomitant]
     Active Substance: SENNA LEAF
     Dosage: UNK
  22. VITAMIN D NOS [Concomitant]
     Active Substance: CHOLECALCIFEROL\ERGOCALCIFEROL
     Dosage: UNK
  23. CALCIUM [Concomitant]
     Active Substance: CALCIUM
     Dosage: UNK
  24. VITAMIN C [Concomitant]
     Active Substance: ASCORBIC ACID
     Dosage: UNK
  25. METAMUCIL [Concomitant]
     Active Substance: PLANTAGO SEED
     Dosage: UNK
  26. IRON [Concomitant]
     Active Substance: IRON
     Dosage: UNK

REACTIONS (43)
  - Paralysis [Unknown]
  - Illness [Unknown]
  - Cervical vertebral fracture [Unknown]
  - Neck injury [Unknown]
  - Deafness unilateral [Unknown]
  - Spinal cord injury [Unknown]
  - Accident [Unknown]
  - Mental impairment [Unknown]
  - Spinal operation [Unknown]
  - Knee arthroplasty [Unknown]
  - Osteogenesis imperfecta [Not Recovered/Not Resolved]
  - Secondary immunodeficiency [Unknown]
  - Neoplasm malignant [Unknown]
  - Chronic kidney disease [Unknown]
  - Respiratory arrest [Unknown]
  - Osteomyelitis [Unknown]
  - Rheumatoid arthritis [Unknown]
  - Condition aggravated [Unknown]
  - Therapeutic product effect incomplete [Unknown]
  - Sciatica [Unknown]
  - Dizziness [Unknown]
  - Asthenia [Unknown]
  - Muscular weakness [Unknown]
  - Nausea [Unknown]
  - Feeling hot [Unknown]
  - Headache [Unknown]
  - Flushing [Unknown]
  - Spinal decompression [Recovering/Resolving]
  - Bone density decreased [Not Recovered/Not Resolved]
  - Tooth disorder [Unknown]
  - Sinus congestion [Unknown]
  - Memory impairment [Not Recovered/Not Resolved]
  - Blood disorder [Unknown]
  - Bone lesion [Unknown]
  - Eye pain [Unknown]
  - Infection [Unknown]
  - Urinary tract infection [Unknown]
  - Impaired healing [Unknown]
  - Vertigo [Unknown]
  - Visual impairment [Unknown]
  - Fall [Unknown]
  - Head injury [Unknown]
  - Gait inability [Unknown]

NARRATIVE: CASE EVENT DATE: 20160101
